FAERS Safety Report 12439324 (Version 1)
Quarter: 2016Q2

REPORT INFORMATION
  Report Type: Spontaneous
  Country: US (occurrence: US)
  Receive Date: 20160606
  Receipt Date: 20160606
  Transmission Date: 20160815
  Serious: Yes (Hospitalization, Other)
  Sender: FDA-Public Use
  Company Number: US-GLAXOSMITHKLINE-US2016080070

PATIENT
  Age: 77 Year
  Sex: Female

DRUGS (4)
  1. ANORO ELLIPTA [Suspect]
     Active Substance: UMECLIDINIUM BROMIDE\VILANTEROL TRIFENATATE
     Indication: LUNG DISORDER
  2. ANORO ELLIPTA [Suspect]
     Active Substance: UMECLIDINIUM BROMIDE\VILANTEROL TRIFENATATE
     Indication: NASOPHARYNGITIS
     Dosage: 1 PUFF(S), QD
     Route: 055
     Dates: start: 201512, end: 20160204
  3. LEVOTHYROXINE. [Concomitant]
     Active Substance: LEVOTHYROXINE
  4. LISINOPRIL. [Concomitant]
     Active Substance: LISINOPRIL

REACTIONS (14)
  - Dyspnoea [Recovering/Resolving]
  - Sluggishness [Recovering/Resolving]
  - Neck pain [Recovered/Resolved]
  - Back pain [Unknown]
  - Pneumonitis [Unknown]
  - Pneumonia [Recovered/Resolved with Sequelae]
  - Trismus [Recovered/Resolved]
  - Haemoptysis [Recovered/Resolved]
  - Product use issue [Recovered/Resolved]
  - Pulmonary haemorrhage [Unknown]
  - Syncope [Recovered/Resolved]
  - Muscle spasms [Recovering/Resolving]
  - Total lung capacity decreased [Recovering/Resolving]
  - Sensory loss [Recovering/Resolving]

NARRATIVE: CASE EVENT DATE: 201512
